FAERS Safety Report 20830458 (Version 1)
Quarter: 2022Q2

REPORT INFORMATION
  Report Type: Spontaneous
  Country: US (occurrence: US)
  Receive Date: 20220514
  Receipt Date: 20220514
  Transmission Date: 20220721
  Serious: No
  Sender: FDA-Public Use
  Company Number: US-SA-SAC20220511001807

PATIENT
  Sex: Female

DRUGS (9)
  1. DUPIXENT [Suspect]
     Active Substance: DUPILUMAB
     Indication: Asthma
     Dosage: 300 MG, QOW
     Route: 058
  2. ALBUTEROL SULFATE [Concomitant]
     Active Substance: ALBUTEROL SULFATE
  3. KLONOPIN [Concomitant]
     Active Substance: CLONAZEPAM
  4. BEVESPI AEROSPHERE [Concomitant]
     Active Substance: FORMOTEROL FUMARATE\GLYCOPYRROLATE
  5. CRANBERRY [Concomitant]
     Active Substance: CRANBERRY
  6. CALCIUM\VITAMIN D [Concomitant]
     Active Substance: CALCIUM\VITAMIN D
  7. EPIPEN [Concomitant]
     Active Substance: EPINEPHRINE
  8. .ALPHA.-TOCOPHEROL [Concomitant]
     Active Substance: .ALPHA.-TOCOPHEROL
  9. VITAMINS NOS [Concomitant]
     Active Substance: VITAMINS

REACTIONS (7)
  - Tongue pruritus [Unknown]
  - Oral pruritus [Unknown]
  - Glucose tolerance impaired [Unknown]
  - Chest discomfort [Unknown]
  - Secretion discharge [Unknown]
  - Hypersensitivity [Unknown]
  - Therapeutic response decreased [Unknown]
